FAERS Safety Report 7402620-9 (Version None)
Quarter: 2011Q2

REPORT INFORMATION
  Report Type: 
  Country: None (occurrence: None)
  Receive Date: 20110408
  Receipt Date: 20110407
  Transmission Date: 20111010
  Serious: No
  Sender: FDA-Public Use
  Company Number: US-PFIZER INC-US-WYE-H14606310

PATIENT
  Sex: Female
  Weight: 96.6 kg

DRUGS (7)
  1. CHANTIX [Suspect]
     Dosage: 0.5 MG, 1X/DAY
     Route: 065
     Dates: start: 20080801, end: 20080101
  2. CHANTIX [Suspect]
     Dosage: UNKNOWN
     Route: 048
     Dates: start: 20100401
  3. EFFEXOR [Suspect]
     Indication: BIPOLAR DISORDER
     Dosage: 300 MG, 1X/DAY
     Route: 048
  4. ABILIFY [Suspect]
     Indication: BIPOLAR DISORDER
     Dosage: 15 MG, 1X/DAY
     Route: 048
  5. GEODON [Suspect]
     Dosage: 240 MG, 1X/DAY
     Route: 048
  6. KLONOPIN [Suspect]
     Indication: ANXIETY
     Dosage: 1.5 MG, 3X/DAY
     Route: 048
  7. DEPAKOTE [Suspect]
     Indication: BIPOLAR DISORDER
     Dosage: 2500 MG, 1X/DAY
     Route: 048

REACTIONS (6)
  - ANXIETY [None]
  - RESTLESSNESS [None]
  - HALLUCINATION [None]
  - CRYING [None]
  - ABNORMAL DREAMS [None]
  - FORMICATION [None]
